FAERS Safety Report 4594672-9 (Version None)
Quarter: 2005Q1

REPORT INFORMATION
  Report Type: 
  Country: None (occurrence: None)
  Receive Date: 20050301
  Receipt Date: 20041210
  Transmission Date: 20050727
  Serious: No
  Sender: FDA-Public Use
  Company Number: US-BRISTOL-MYERS SQUIBB COMPANY-12791588

PATIENT
  Age: 69 Year
  Sex: Female

DRUGS (11)
  1. ERBITUX [Suspect]
     Indication: COLON CANCER METASTATIC
     Route: 042
     Dates: start: 20040101, end: 20040101
  2. ALOXI [Concomitant]
     Indication: PREMEDICATION
     Dates: start: 20040101, end: 20040101
  3. DECADRON [Concomitant]
     Indication: PREMEDICATION
     Dates: start: 20040101, end: 20040101
  4. BENADRYL [Concomitant]
     Indication: PREMEDICATION
     Dates: start: 20040101, end: 20040101
  5. IRINOTECAN HCL [Concomitant]
  6. LEUCOVORIN [Concomitant]
  7. FLUOROURACIL [Concomitant]
     Dosage: 748 MG BOLUS, 4488 MG CONTINUOUS OVER 48 HOURS
  8. TRAVATAN [Concomitant]
  9. LORTAB [Concomitant]
     Dosage: DOSAGE FORM = 7.5/500
  10. DURAGESIC PATCH [Concomitant]
  11. CLIMARA [Concomitant]

REACTIONS (2)
  - CHEILITIS [None]
  - DERMATITIS ACNEIFORM [None]
